FAERS Safety Report 9573578 (Version 1)
Quarter: 2013Q4

REPORT INFORMATION
  Report Type: Spontaneous
  Country: US (occurrence: US)
  Receive Date: 20131001
  Receipt Date: 20131001
  Transmission Date: 20140711
  Serious: No
  Sender: FDA-Public Use
  Company Number: US-PFIZER INC-2013278140

PATIENT
  Age: 53 Year
  Sex: Male
  Weight: 89.8 kg

DRUGS (12)
  1. CARVEDILOL [Suspect]
     Dosage: 6.25 MG, 2X/DAY
  2. CITALOPRAM HBR [Suspect]
     Dosage: 10 MG, DAILY
  3. DEXAMETHASONE SODIUM PHOSPHATE [Suspect]
     Indication: ADVERSE DRUG REACTION
     Dosage: 8 MG, DAILY
  4. HYDROCORTISONE [Suspect]
     Indication: HORMONE THERAPY
     Dosage: 5 MG, DAILY
  5. LOSARTAN POTASSIUM [Suspect]
     Dosage: 100 MG, DAILY
  6. PANTOPRAZOLE [Suspect]
     Dosage: 40 MG, 2X/DAY
  7. POTASSIUM CHLORIDE [Suspect]
     Dosage: 20 MEQ, 2X/DAY
  8. MAGNESIUM [Suspect]
     Dosage: 250 MG, 2X/DAY
  9. FLUDROCORTISONE [Suspect]
     Dosage: 0.05 MG (HALF OF 0.1 MG TABLET), DAILY
  10. FLUTICASONE PROPIONATE [Suspect]
     Dosage: UNK
  11. METRONIDAZOLE [Suspect]
     Indication: CYST
     Dosage: 500 MG, 2X/DAY
     Route: 048
     Dates: start: 201309, end: 201309
  12. OPIUM [Suspect]
     Indication: DIARRHOEA
     Dosage: 6 GTT, AS NEEDED

REACTIONS (4)
  - Cyst [Unknown]
  - Pre-existing condition improved [Unknown]
  - Therapeutic response unexpected [Unknown]
  - Product taste abnormal [Unknown]
